FAERS Safety Report 15402592 (Version 1)
Quarter: 2018Q3

REPORT INFORMATION
  Report Type: Spontaneous
  Country: US (occurrence: US)
  Receive Date: 20180917
  Receipt Date: 20180917
  Transmission Date: 20181010
  Serious: Yes (Disabling)
  Sender: FDA-Public Use
  Company Number: None

PATIENT
  Age: 64 Year
  Sex: Female
  Weight: 63 kg

DRUGS (1)
  1. CEPHALEXIN 250 MG CAPSULE [Suspect]
     Active Substance: CEPHALEXIN
     Indication: SKIN INFECTION
     Dosage: ?          QUANTITY:30 CAPSULE(S);?
     Route: 048
     Dates: start: 20180618, end: 20180628

REACTIONS (1)
  - Fatigue [None]

NARRATIVE: CASE EVENT DATE: 20180618
